FAERS Safety Report 19834497 (Version 1)
Quarter: 2021Q3

REPORT INFORMATION
  Report Type: Spontaneous
  Country: US (occurrence: US)
  Receive Date: 20210915
  Receipt Date: 20210915
  Transmission Date: 20211014
  Serious: No
  Sender: FDA-Public Use
  Company Number: US-GLAXOSMITHKLINE-US2021193302

PATIENT
  Sex: Female

DRUGS (1)
  1. LAMOTRIGINE. [Suspect]
     Active Substance: LAMOTRIGINE
     Indication: PRODUCT USED FOR UNKNOWN INDICATION
     Dosage: 75 MG

REACTIONS (6)
  - Chills [Recovered/Resolved]
  - Arthralgia [Not Recovered/Not Resolved]
  - Urinary hesitation [Not Recovered/Not Resolved]
  - Headache [Recovered/Resolved]
  - Myalgia [Not Recovered/Not Resolved]
  - Bladder spasm [Recovered/Resolved]
